FAERS Safety Report 11488687 (Version 1)
Quarter: 2015Q3

REPORT INFORMATION
  Report Type: Spontaneous
  Country: US (occurrence: US)
  Receive Date: 20150910
  Receipt Date: 20150910
  Transmission Date: 20151125
  Serious: Yes (Other)
  Sender: FDA-Public Use
  Company Number: US-ROCHE-1462293

PATIENT
  Sex: Female

DRUGS (1)
  1. PEGASYS [Suspect]
     Active Substance: PEGINTERFERON ALFA-2A
     Indication: POLYCYTHAEMIA VERA
     Route: 058
     Dates: start: 20140520

REACTIONS (3)
  - Hepatic enzyme increased [Recovering/Resolving]
  - Emotional disorder [Not Recovered/Not Resolved]
  - Rash [Not Recovered/Not Resolved]
